FAERS Safety Report 7281573 (Version 3)
Quarter: 2012Q4

REPORT INFORMATION
  Report Type: 
  Country: US (occurrence: US)
  Receive Date: 20100217
  Receipt Date: 20121220
  Transmission Date: 20130627
  Serious: Yes (Other)
  Sender: FDA-Public Use
  Company Number: US-ELI_LILLY_AND_COMPANY-US201002003679

PATIENT
  Age: 61 None
  Sex: Female
  Weight: 95.24 kg

DRUGS (6)
  1. BYETTA [Suspect]
     Dosage: UNK, unknown
     Route: 065
     Dates: start: 200606, end: 200904
  2. METFORMIN [Concomitant]
     Indication: DIABETES MELLITUS
     Dates: start: 2006, end: 2009
  3. GLIMEPIRIDE [Concomitant]
     Indication: DIABETES MELLITUS
     Dates: start: 2009
  4. CALCIUM [Concomitant]
  5. IRON [Concomitant]
     Dosage: UNK, daily (1/D)
  6. TYLENOL                                 /SCH/ [Concomitant]
     Dosage: UNK, as needed

REACTIONS (2)
  - Pancreatitis [Not Recovered/Not Resolved]
  - Hypertriglyceridaemia [Unknown]
